FAERS Safety Report 25513331 (Version 1)
Quarter: 2025Q3

REPORT INFORMATION
  Report Type: Spontaneous
  Country: JP (occurrence: JP)
  Receive Date: 20250703
  Receipt Date: 20250703
  Transmission Date: 20251020
  Serious: Yes (Other)
  Sender: BAUSCH AND LOMB
  Company Number: JP-CHUGAI-2024031700

PATIENT
  Age: 66 Year
  Sex: Female
  Weight: 54.1 kg

DRUGS (11)
  1. LOCOID [Suspect]
     Active Substance: HYDROCORTISONE BUTYRATE
     Indication: Product used for unknown indication
     Route: 062
     Dates: start: 20240131
  2. ERLOTINIB [Suspect]
     Active Substance: ERLOTINIB
     Indication: Lung adenocarcinoma
     Dosage: 150 MILLIGRAM, QD
     Route: 048
     Dates: start: 20240116, end: 20240606
  3. RAMUCIRUMAB [Suspect]
     Active Substance: RAMUCIRUMAB
     Indication: Lung adenocarcinoma
  4. ROSUVASTATIN [Concomitant]
     Active Substance: ROSUVASTATIN
     Dosage: ORALLY DISINTEGRATING
     Route: 048
     Dates: start: 20231213, end: 20240410
  5. CALCIUM CARBONATE\CHOLECALCIFEROL\MAGNESIUM CARBONATE [Concomitant]
     Active Substance: CALCIUM CARBONATE\CHOLECALCIFEROL\MAGNESIUM CARBONATE
     Route: 048
     Dates: start: 20240110
  6. Heparinoid [Concomitant]
     Route: 062
     Dates: start: 20240116
  7. MINOCYCLINE HYDROCHLORIDE [Concomitant]
     Active Substance: MINOCYCLINE HYDROCHLORIDE
     Route: 048
     Dates: start: 20240116, end: 20240131
  8. MIYA-BM [Concomitant]
     Active Substance: CLOSTRIDIUM BUTYRICUM SPORES STRAIN M-55
     Route: 048
     Dates: start: 20240116
  9. LOPERAMIDE HYDROCHLORIDE [Concomitant]
     Active Substance: LOPERAMIDE HYDROCHLORIDE
     Route: 048
     Dates: start: 20240116
  10. GLYCOSAMINOGLYCANS [Concomitant]
     Active Substance: GLYCOSAMINOGLYCANS
     Route: 062
     Dates: start: 20240131
  11. White soft parafin [Concomitant]
     Route: 062
     Dates: start: 20240116

REACTIONS (9)
  - Acne [Unknown]
  - Dermatitis acneiform [Unknown]
  - Dry skin [Unknown]
  - Pemphigoid [Not Recovered/Not Resolved]
  - Ocular pemphigoid [Recovering/Resolving]
  - Pain [Unknown]
  - Ocular hyperaemia [Unknown]
  - Dry eye [Recovering/Resolving]
  - Rash [Unknown]

NARRATIVE: CASE EVENT DATE: 20240221
